FAERS Safety Report 6909185-6 (Version None)
Quarter: 2010Q3

REPORT INFORMATION
  Report Type: 
  Country: None (occurrence: None)
  Receive Date: 20100805
  Receipt Date: 20100727
  Transmission Date: 20110219
  Serious: Yes (Other)
  Sender: FDA-Public Use
  Company Number: US-JNJFOC-20100708813

PATIENT
  Age: 49 Year
  Sex: Female
  Weight: 72.58 kg

DRUGS (2)
  1. TOPAMAX [Suspect]
     Indication: MIGRAINE PROPHYLAXIS
     Dosage: 25 MG, 2 TABLETS ONE TIME A DAY.
     Route: 048
  2. TOPAMAX [Suspect]
     Route: 048

REACTIONS (8)
  - ASTHENOPIA [None]
  - DIPLOPIA [None]
  - DISORIENTATION [None]
  - DRUG INEFFECTIVE [None]
  - EYE DISORDER [None]
  - EYE PAIN [None]
  - FATIGUE [None]
  - VISION BLURRED [None]
